FAERS Safety Report 20566529 (Version 5)
Quarter: 2023Q4

REPORT INFORMATION
  Report Type: Spontaneous
  Country: US (occurrence: US)
  Receive Date: 20220308
  Receipt Date: 20231221
  Transmission Date: 20240110
  Serious: Yes (Hospitalization, Disabling, Other)
  Sender: FDA-Public Use
  Company Number: US-ORGANON-O2203USA000606

PATIENT
  Sex: Female

DRUGS (4)
  1. SINGULAIR [Suspect]
     Active Substance: MONTELUKAST SODIUM
     Indication: Asthma
     Dosage: 5 MILLIGRAM, QD (IN THE EVENING)
     Route: 048
     Dates: start: 2005
  2. SINGULAIR [Suspect]
     Active Substance: MONTELUKAST SODIUM
     Indication: Hypersensitivity
     Dosage: 5 MILLIGRAM, QD, (IN THE EVENING)
     Route: 048
     Dates: start: 2006, end: 2015
  3. DIAZEPAM [Concomitant]
     Active Substance: DIAZEPAM
     Indication: Anxiety
     Dosage: 2 MILLIGRAM, AS NEEDED
  4. ZYRTEC [Concomitant]
     Active Substance: CETIRIZINE HYDROCHLORIDE
     Indication: Seasonal allergy
     Dosage: 1 DOSAGE FORM, AS NEEDED

REACTIONS (32)
  - Neuropsychological symptoms [Not Recovered/Not Resolved]
  - Obsessive-compulsive disorder [Not Recovered/Not Resolved]
  - Anxiety [Recovering/Resolving]
  - Depression [Not Recovered/Not Resolved]
  - Abdominal pain [Recovering/Resolving]
  - Constipation [Recovering/Resolving]
  - Nausea [Not Recovered/Not Resolved]
  - Gastrointestinal disorder [Unknown]
  - Peptic ulcer [Unknown]
  - Eating disorder [Recovered/Resolved]
  - Separation anxiety disorder [Not Recovered/Not Resolved]
  - Phobia [Not Recovered/Not Resolved]
  - Sensory processing disorder [Not Recovered/Not Resolved]
  - Headache [Unknown]
  - Vomiting [Unknown]
  - Dyspepsia [Unknown]
  - Abdominal pain upper [Not Recovered/Not Resolved]
  - Irritable bowel syndrome [Unknown]
  - Weight decreased [Not Recovered/Not Resolved]
  - Hypophagia [Unknown]
  - Diarrhoea [Unknown]
  - Insomnia [Unknown]
  - Affect lability [Unknown]
  - Abdominal migraine [Unknown]
  - Abdominal distension [Unknown]
  - Renal colic [Unknown]
  - Biliary colic [Unknown]
  - Constipation [Unknown]
  - Dehydration [Unknown]
  - Abdominal pain upper [Recovering/Resolving]
  - Flatulence [Unknown]
  - Irritable bowel syndrome [Unknown]

NARRATIVE: CASE EVENT DATE: 20070101
